FAERS Safety Report 10073891 (Version 2)
Quarter: 2014Q4

REPORT INFORMATION
  Report Type: Spontaneous
  Country: TR (occurrence: TR)
  Receive Date: 20140411
  Receipt Date: 20141120
  Transmission Date: 20150528
  Serious: Yes (Other)
  Sender: FDA-Public Use
  Company Number: PHHY2014TR039720

PATIENT
  Age: 61 Year
  Sex: Male

DRUGS (2)
  1. VALPROIC ACID. [Suspect]
     Active Substance: VALPROIC ACID
  2. LAMOTRIGINE. [Interacting]
     Active Substance: LAMOTRIGINE

REACTIONS (8)
  - Pyrexia [Unknown]
  - Lymphadenopathy [Unknown]
  - Oral disorder [Unknown]
  - Lymphopenia [Unknown]
  - Drug reaction with eosinophilia and systemic symptoms [Unknown]
  - Rash morbilliform [Unknown]
  - Hepatic function abnormal [Unknown]
  - Drug interaction [Unknown]
